FAERS Safety Report 5341702-2 (Version None)
Quarter: 2007Q2

REPORT INFORMATION
  Report Type: 
  Country: None (occurrence: None)
  Receive Date: 20070529
  Receipt Date: 20070529
  Transmission Date: 20071010
  Serious: Yes (Hospitalization)
  Sender: FDA-Public Use
  Company Number: None

PATIENT
  Age: 34 Year
  Sex: Female

DRUGS (1)
  1. SINEQUAN [Suspect]
     Indication: ANXIETY

REACTIONS (3)
  - CHEST PAIN [None]
  - DIZZINESS [None]
  - PALPITATIONS [None]
